FAERS Safety Report 14713604 (Version 1)
Quarter: 2018Q2

REPORT INFORMATION
  Report Type: Spontaneous
  Country: CN (occurrence: CN)
  Receive Date: 20180404
  Receipt Date: 20180404
  Transmission Date: 20180711
  Serious: Yes (Hospitalization)
  Sender: FDA-Public Use
  Company Number: CN-BAYER-2018-057009

PATIENT

DRUGS (2)
  1. BAYASPIRIN 100 MG [Suspect]
     Active Substance: ASPIRIN
     Indication: MYOCARDIAL INFARCTION
     Dosage: UNK
     Route: 060
     Dates: start: 2011
  2. BAYASPIRIN 100 MG [Suspect]
     Active Substance: ASPIRIN
     Indication: CHEST DISCOMFORT

REACTIONS (7)
  - Chest discomfort [None]
  - Incorrect route of drug administration [None]
  - Myocardial infarction [None]
  - Product contamination physical [None]
  - Myocardial infarction [None]
  - Poor quality drug administered [None]
  - Drug ineffective [None]

NARRATIVE: CASE EVENT DATE: 20180316
